FAERS Safety Report 5725852-4 (Version None)
Quarter: 2008Q2

REPORT INFORMATION
  Report Type: 
  Country: None (occurrence: None)
  Receive Date: 20080429
  Receipt Date: 20080415
  Transmission Date: 20081010
  Serious: Yes (Other)
  Sender: FDA-Public Use
  Company Number: 2008SP002145

PATIENT
  Age: 78 Year
  Sex: Male

DRUGS (9)
  1. CORICIDIN HBP CHEST CONGESTION + COUGH (DEXTROMETHORPHAN HYDROBROMIDE/ [Suspect]
     Indication: NASOPHARYNGITIS
     Dosage: 1 DF;HS;PO
     Route: 048
     Dates: start: 20080111
  2. CORICIDIN HBP CHEST CONGESTION + COUGH (DEXTROMETHORPHAN HYDROBROMIDE/ [Suspect]
     Indication: RESPIRATORY TRACT CONGESTION
     Dosage: 1 DF;HS;PO
     Route: 048
     Dates: start: 20080111
  3. COUMADIN [Concomitant]
  4. BLOOD PRESSURE MEDICATION [Concomitant]
  5. LASIX [Concomitant]
  6. MONOPRIL [Concomitant]
  7. PLAVIX [Concomitant]
  8. PRAVACHOL [Concomitant]
  9. ASPIRIN [Concomitant]

REACTIONS (6)
  - DECREASED APPETITE [None]
  - DEPRESSION [None]
  - EPISTAXIS [None]
  - JOINT SWELLING [None]
  - OXYGEN SATURATION DECREASED [None]
  - THROMBOSIS [None]
